FAERS Safety Report 8145341-X (Version None)
Quarter: 2012Q1

REPORT INFORMATION
  Report Type: 
  Country: None (occurrence: None)
  Receive Date: 20120217
  Receipt Date: 20120210
  Transmission Date: 20120608
  Serious: Yes (Death, Hospitalization)
  Sender: FDA-Public Use
  Company Number: US-CELGENEUS-163-50794-12021283

PATIENT
  Sex: Female
  Weight: 50.349 kg

DRUGS (8)
  1. MIDOSTAURIN [Suspect]
     Dosage: 75 MILLIGRAM
     Route: 048
     Dates: start: 20120126, end: 20120208
  2. RED BLOOD CELLS [Concomitant]
     Route: 041
     Dates: start: 20120208, end: 20120208
  3. AMIODARONE HCL [Concomitant]
     Route: 041
  4. PIPERACILLIN AND TAZOBACTAM [Concomitant]
     Route: 041
  5. MIDAZOLAM [Concomitant]
     Route: 041
  6. VANCOMYCIN [Concomitant]
     Route: 065
  7. VIDAZA [Suspect]
     Dosage: 75 MILLIGRAM/SQ. METER
     Route: 041
     Dates: start: 20120119, end: 20120125
  8. LISPRO INSULIN [Concomitant]
     Route: 065

REACTIONS (11)
  - BLOOD GLUCOSE DECREASED [None]
  - FATIGUE [None]
  - LETHARGY [None]
  - ANAEMIA [None]
  - ASTHENIA [None]
  - TACHYPNOEA [None]
  - MULTI-ORGAN FAILURE [None]
  - BLOOD PH DECREASED [None]
  - BLOOD LACTIC ACID INCREASED [None]
  - PYREXIA [None]
  - HYPOTENSION [None]
